FAERS Safety Report 8879930 (Version 2)
Quarter: 2012Q4

REPORT INFORMATION
  Report Type: Report from Study
  Country: JP (occurrence: JP)
  Receive Date: 20121031
  Receipt Date: 20121204
  Transmission Date: 20130627
  Serious: Yes (Hospitalization)
  Sender: FDA-Public Use
  Company Number: JP-BAYER-2012-113764

PATIENT
  Age: 71 Year
  Sex: Male
  Weight: 59.41 kg

DRUGS (11)
  1. ACARBOSE [Suspect]
     Indication: DIABETES MELLITUS
     Dosage: UNK
     Route: 048
     Dates: start: 20111108, end: 20120904
  2. ACARBOSE [Suspect]
     Indication: DIABETES MELLITUS
     Dosage: 50 mg, QD
     Route: 048
     Dates: start: 20120514, end: 20120603
  3. ACARBOSE [Suspect]
     Indication: DIABETES MELLITUS
     Dosage: 50 mg, TID
     Route: 048
     Dates: start: 20120605, end: 20120904
  4. BAYASPIRIN [Concomitant]
     Dosage: Daily dose 100 mg
     Route: 048
  5. GLACTIV [Suspect]
     Indication: DIABETES MELLITUS
     Dosage: Daily dose 50 mg
     Route: 048
     Dates: end: 20121010
  6. DIBETOS [Suspect]
     Indication: DIABETES MELLITUS
     Dosage: Daily dose 3 DF
     Route: 048
     Dates: end: 20120514
  7. AMARYL [Suspect]
     Indication: DIABETES MELLITUS
     Dosage: Daily dose 2 DF
     Route: 048
     Dates: end: 20120514
  8. AMARYL [Suspect]
     Indication: DIABETES MELLITUS
     Dosage: Daily dose 1 DF
     Route: 048
     Dates: start: 20120514
  9. AMARYL [Suspect]
     Indication: DIABETES MELLITUS
     Dosage: Daily dose 1 DF
     Route: 048
     Dates: start: 20120514
  10. HERBESSER R [Concomitant]
     Dosage: Daily dose 2 DF
     Route: 048
  11. LIPIDIL [Concomitant]
     Dosage: Daily dose 1 DF
     Route: 048

REACTIONS (2)
  - Flatulence [Recovering/Resolving]
  - Hepatitis E [Recovering/Resolving]
